FAERS Safety Report 5810468-1 (Version None)
Quarter: 2008Q3

REPORT INFORMATION
  Report Type: 
  Country: None (occurrence: None)
  Receive Date: 20080709
  Receipt Date: 20080627
  Transmission Date: 20090109
  Serious: Yes (Hospitalization, Other)
  Sender: FDA-Public Use
  Company Number: 2008AP000455

PATIENT
  Age: 65 Year
  Sex: Female

DRUGS (14)
  1. PAROXETINE HYDROCHLOLRIDE [Suspect]
  2. METHYLENE BLUE     (METHYLTHIONIUM CHLORIDE) [Suspect]
     Indication: PARATHYROIDECTOMY
     Dosage: 200 MG; INJECT; IV; 1X, 200 MG; 1X IV
     Route: 042
  3. ISOPHANE INSULIN [Concomitant]
  4. METFORMIN HCL [Concomitant]
  5. RAMIPRIL [Concomitant]
  6. ATENOLOL [Concomitant]
  7. ACETYLSALICYLIC ACID SRT [Concomitant]
  8. SIMVASTATIN [Concomitant]
  9. CARBIMAZOLE (CARBIMAZOLE) [Concomitant]
  10. FENTANYL [Concomitant]
  11. MIDAZOLAM HCL [Concomitant]
  12. PROPOFOL [Concomitant]
  13. ROCURONIUM BROMIDE [Concomitant]
  14. PAROXETINE HCL [Concomitant]

REACTIONS (2)
  - DRUG INTERACTION [None]
  - SEROTONIN SYNDROME [None]
